FAERS Safety Report 19923844 (Version 1)
Quarter: 2021Q4

REPORT INFORMATION
  Report Type: Spontaneous
  Country: US (occurrence: US)
  Receive Date: 20211005
  Receipt Date: 20211005
  Transmission Date: 20220303
  Serious: No
  Sender: FDA-Public Use
  Company Number: None

PATIENT
  Age: 57 Year
  Sex: Female

DRUGS (1)
  1. HUMIRA [Suspect]
     Active Substance: ADALIMUMAB
     Indication: Rheumatoid arthritis
     Dosage: INJECT 400MG SUBCUTANEOUSLY EVERY 2 WEEKS AS DIRECTED. (ABDOMEN OR THIGH. ROTATE SITES)
     Route: 058
     Dates: start: 202107

REACTIONS (4)
  - Illness [None]
  - Urinary tract infection [None]
  - Cystitis [None]
  - Therapy interrupted [None]
